FAERS Safety Report 21305587 (Version 15)
Quarter: 2023Q2

REPORT INFORMATION
  Report Type: Spontaneous
  Country: CA (occurrence: CA)
  Receive Date: 20220908
  Receipt Date: 20230605
  Transmission Date: 20230722
  Serious: Yes (Other)
  Sender: FDA-Public Use
  Company Number: CA-CELLTRION INC.-2022CA011643

PATIENT

DRUGS (27)
  1. INFLECTRA [Suspect]
     Active Substance: INFLIXIMAB-DYYB
     Indication: Colitis ulcerative
     Dosage: 1100 MG Q 0, 2, 6 WEEKS, THEN EVERY 8 WEEKS
     Route: 042
     Dates: start: 20180414, end: 20180414
  2. INFLECTRA [Suspect]
     Active Substance: INFLIXIMAB-DYYB
     Dosage: 1100 MG Q 0, 2, 6 WEEKS, THEN EVERY 8 WEEKS
     Route: 042
     Dates: start: 20180414, end: 20190903
  3. INFLECTRA [Suspect]
     Active Substance: INFLIXIMAB-DYYB
     Dosage: 1300 MG EVERY 8 WEEKS
     Route: 042
     Dates: start: 20191029, end: 20200218
  4. INFLECTRA [Suspect]
     Active Substance: INFLIXIMAB-DYYB
     Dosage: 1100 MG EVERY 8 WEEKS
     Route: 042
     Dates: start: 20200413, end: 20201001
  5. INFLECTRA [Suspect]
     Active Substance: INFLIXIMAB-DYYB
     Dosage: 1100 MG EVERY 8 WEEKS
     Route: 042
     Dates: start: 20201001
  6. INFLECTRA [Suspect]
     Active Substance: INFLIXIMAB-DYYB
     Dosage: 10 MG/KG OR 1000MG AT Q 0 ,2, 6 WEEK THEN EVERY 8 WEEKS
     Route: 042
     Dates: start: 20220709, end: 20220727
  7. INFLECTRA [Suspect]
     Active Substance: INFLIXIMAB-DYYB
     Dosage: 10 MG/KG OR 1000MG AT Q 0 ,2, 6 WEEK THEN EVERY 8
     Route: 042
     Dates: start: 20220727
  8. INFLECTRA [Suspect]
     Active Substance: INFLIXIMAB-DYYB
     Dosage: 10 MG/KG,1000 MG WEEK 6 AND THEN EVERY 4 WEEKS
     Route: 042
     Dates: start: 20220823
  9. INFLECTRA [Suspect]
     Active Substance: INFLIXIMAB-DYYB
     Dosage: 10 MG/KG,1000 MG WEEK 6 AND THEN EVERY 4 WEEKS
     Route: 042
     Dates: start: 20220920
  10. INFLECTRA [Suspect]
     Active Substance: INFLIXIMAB-DYYB
     Dosage: 10 MG/KG 1000 MG WEEK 6 AND THEN EVERY 4 WEEKS
     Route: 042
     Dates: start: 20221018
  11. INFLECTRA [Suspect]
     Active Substance: INFLIXIMAB-DYYB
     Dosage: 10 MG/KG 1000 MG WEEK 6 AND THEN EVERY 4 WEEKS
     Route: 042
     Dates: start: 20221115
  12. INFLECTRA [Suspect]
     Active Substance: INFLIXIMAB-DYYB
     Dosage: 10 MG/KG 1000 MG WEEK 6 AND THEN EVERY 4 WEEKS
     Route: 042
     Dates: start: 20221217
  13. INFLECTRA [Suspect]
     Active Substance: INFLIXIMAB-DYYB
     Dosage: 10 MG/KG 1000 MG WEEK 6 AND THEN EVERY 4 WEEKS
     Route: 042
     Dates: start: 20230202
  14. INFLECTRA [Suspect]
     Active Substance: INFLIXIMAB-DYYB
     Dosage: 10 MG/KG 1000 MG WEEK 6 AND THEN EVERY 4 WEEKS
     Route: 042
     Dates: start: 20230301
  15. INFLECTRA [Suspect]
     Active Substance: INFLIXIMAB-DYYB
     Dosage: 1000 MG AFTER 7 WEEKS
     Route: 042
     Dates: start: 20230424
  16. INFLECTRA [Suspect]
     Active Substance: INFLIXIMAB-DYYB
     Dosage: 1000 MG, AFTER 4 WEEKS
     Dates: start: 20230525
  17. MESALAMINE [Concomitant]
     Active Substance: MESALAMINE
     Dosage: 1 DF, DOSAGE INFO UNAVAILABLE, DRUG ONGOING
     Route: 065
     Dates: start: 2013
  18. ATORVASTATIN [Concomitant]
     Active Substance: ATORVASTATIN
     Dosage: 40 MG, 1X/DAY, QHS, DRUG ONGOING
     Route: 048
  19. APIXABAN [Concomitant]
     Active Substance: APIXABAN
     Dosage: 5 MG, 2X/DAY ( Q12HR, DRUG ONGOING)
     Route: 048
  20. BISOPROLOL [Concomitant]
     Active Substance: BISOPROLOL
     Dosage: 7.5 MG, 1X/DAY, DOSE - 7.5 MG, DRUG ONGOING (1DF)
     Route: 048
  21. ESCITALOPRAM [Concomitant]
     Active Substance: ESCITALOPRAM OXALATE
     Dosage: 10 MG, 1X/DAY, DRUG ONGOING
     Route: 048
  22. LANTUS [Concomitant]
     Active Substance: INSULIN GLARGINE
     Dosage: 52 DF, 2X/DAY DOSE - 52 U, DRUG ONGOING
     Route: 065
  23. METFORMIN [Concomitant]
     Active Substance: METFORMIN HYDROCHLORIDE
     Dosage: 500 MG, 2X/DAY, 500MG BID + 1000MG OD WITH MEALS
     Route: 048
  24. NOVORAPID [Concomitant]
     Active Substance: INSULIN ASPART
     Dosage: 1 DF, DOSE - 10-12U WITH MEALS, DRUG ONGOING
     Route: 065
  25. PREDNISONE [Concomitant]
     Active Substance: PREDNISONE
     Dosage: 1 DF, TAPERING DOSE, DOSAGE INFO UNAVAILABLE, DRUG ONGOING
     Route: 065
     Dates: start: 20180416
  26. RAMIPRIL [Concomitant]
     Active Substance: RAMIPRIL
     Dosage: 2.5 MG, 1X/DAY, DOSE - 2.5 MG, DRUG ONGOING (1 DF)
     Route: 048
  27. MESALAMINE [Concomitant]
     Active Substance: MESALAMINE
     Dosage: 1 DF, DRUG ONGOING, DOSING INFO UNAVAILABLE, ROUTE - ENEMA
     Route: 054
     Dates: start: 2013

REACTIONS (11)
  - Neoplasm malignant [Unknown]
  - Clostridium difficile infection [Recovered/Resolved]
  - Clostridium difficile infection [Recovering/Resolving]
  - Therapeutic product effect incomplete [Unknown]
  - Condition aggravated [Recovered/Resolved]
  - Fall [Recovered/Resolved]
  - Headache [Recovered/Resolved]
  - Nasopharyngitis [Recovering/Resolving]
  - Malaise [Not Recovered/Not Resolved]
  - Off label use [Unknown]
  - Off label use [Unknown]

NARRATIVE: CASE EVENT DATE: 20180414
